FAERS Safety Report 8966409 (Version 2)
Quarter: 2013Q1

REPORT INFORMATION
  Report Type: Spontaneous
  Country: US (occurrence: US)
  Receive Date: 20121217
  Receipt Date: 20130124
  Transmission Date: 20140127
  Serious: Yes (Death)
  Sender: FDA-Public Use
  Company Number: US-ELI_LILLY_AND_COMPANY-US201212001466

PATIENT
  Age: 40 Year
  Sex: Male
  Weight: 93.42 kg

DRUGS (7)
  1. CYMBALTA [Suspect]
     Dosage: 30 MG, UNKNOWN
  2. OXYCODONE [Concomitant]
  3. METHADONE HYDROCHLORIDE [Concomitant]
  4. PROMETHAZINE [Concomitant]
  5. LORAZEPAM [Concomitant]
  6. AMPHETAMINE [Concomitant]
  7. ETHANOL [Concomitant]

REACTIONS (2)
  - Toxicity to various agents [Fatal]
  - Potentiating drug interaction [Unknown]
